FAERS Safety Report 15225214 (Version 3)
Quarter: 2018Q3

REPORT INFORMATION
  Report Type: Spontaneous
  Country: CA (occurrence: CA)
  Receive Date: 20180801
  Receipt Date: 20180928
  Transmission Date: 20181010
  Serious: Yes (Other)
  Sender: FDA-Public Use
  Company Number: CA-CELLTRION INC.-2017CA015581

PATIENT

DRUGS (12)
  1. INFLECTRA [Suspect]
     Active Substance: INFLIXIMAB-DYYB
     Dosage: 5 MG/KG, (443MG), CYCLIC (EVERY 0, 2, 6 WEEKS, THEN EVERY 8 WEEKS)
     Route: 042
     Dates: start: 20180124
  2. INFLECTRA [Suspect]
     Active Substance: INFLIXIMAB-DYYB
     Dosage: 5 MG/KG,(EVERY 0, 2,6 WEEKS, THEN EVERY 8 WEEKS)
     Route: 042
     Dates: start: 20180321
  3. INFLECTRA [Suspect]
     Active Substance: INFLIXIMAB-DYYB
     Dosage: 5 MG/KG,  (EVERY 0, 2,6 WEEKS, THEN EVERY 8 WEEKS)
     Route: 042
     Dates: start: 20180515
  4. CALCIUM [Concomitant]
     Active Substance: CALCIUM
     Dosage: UNK
  5. IRON [Concomitant]
     Active Substance: IRON
     Dosage: UNK
  6. INFLECTRA [Suspect]
     Active Substance: INFLIXIMAB-DYYB
     Dosage: 5 MG/KG, (443MG), CYCLIC (EVERY 0, 2, 6 WEEKS, THEN EVERY 8 WEEKS)
     Route: 042
     Dates: start: 20180124
  7. MEZAVANT [Concomitant]
     Active Substance: MESALAMINE
     Dosage: UNK
  8. VITAMIN D                          /00107901/ [Concomitant]
     Active Substance: ERGOCALCIFEROL
     Dosage: UNK
  9. INFLECTRA [Suspect]
     Active Substance: INFLIXIMAB-DYYB
     Dosage: 5 MG/KG, (443MG), CYCLIC (EVERY 0, 2, 6 WEEKS, THEN EVERY 8 WEEKS)
     Route: 042
     Dates: start: 20171201
  10. INFLECTRA [Suspect]
     Active Substance: INFLIXIMAB-DYYB
     Dosage: 5 MG/KG, (EVERY 0, 2,6 WEEKS, THEN EVERY 8 WEEKS)
     Route: 042
     Dates: start: 20180720
  11. INFLECTRA [Suspect]
     Active Substance: INFLIXIMAB-DYYB
     Indication: COLITIS ULCERATIVE
     Dosage: 5 MG/KG, (443MG), CYCLIC (EVERY 0, 2, 6 WEEKS, THEN EVERY 8 WEEKS)
     Route: 042
     Dates: start: 20171018
  12. INFLECTRA [Suspect]
     Active Substance: INFLIXIMAB-DYYB
     Dosage: 5 MG/KG,  (EVERY 0, 2,6 WEEKS, THEN EVERY 8 WEEKS)
     Route: 042
     Dates: start: 20180321

REACTIONS (11)
  - Influenza like illness [Recovering/Resolving]
  - Asthenia [Unknown]
  - Pruritus [Not Recovered/Not Resolved]
  - Gingival swelling [Recovered/Resolved]
  - Drug ineffective [Not Recovered/Not Resolved]
  - Body temperature increased [Unknown]
  - Pain [Unknown]
  - Nasopharyngitis [Not Recovered/Not Resolved]
  - Headache [Recovering/Resolving]
  - Tooth disorder [Recovered/Resolved]
  - Oropharyngeal pain [Not Recovered/Not Resolved]

NARRATIVE: CASE EVENT DATE: 20171029
